FAERS Safety Report 17165013 (Version 1)
Quarter: 2019Q4

REPORT INFORMATION
  Report Type: Spontaneous
  Country: CN (occurrence: CN)
  Receive Date: 20191217
  Receipt Date: 20191217
  Transmission Date: 20200122
  Serious: Yes (Life-Threatening)
  Sender: FDA-Public Use
  Company Number: CN-BAYER-2019-220967

PATIENT
  Age: 52 Year
  Sex: Male

DRUGS (1)
  1. STIVARGA [Suspect]
     Active Substance: REGORAFENIB
     Indication: RECTAL CANCER
     Dosage: 2 DF, QD
     Route: 048
     Dates: start: 20191017, end: 20191027

REACTIONS (3)
  - Chest discomfort [Recovering/Resolving]
  - Asthenia [Recovering/Resolving]
  - Off label use [None]

NARRATIVE: CASE EVENT DATE: 20191017
